FAERS Safety Report 7945884-5 (Version None)
Quarter: 2011Q4

REPORT INFORMATION
  Report Type: 
  Country: None (occurrence: None)
  Receive Date: 20111129
  Receipt Date: 20111115
  Transmission Date: 20120403
  Serious: Yes (Hospitalization, Other)
  Sender: FDA-Public Use
  Company Number: FR-ROCHE-1013666

PATIENT
  Sex: Male
  Weight: 82.5 kg

DRUGS (11)
  1. MIRCERA [Suspect]
     Indication: NEPHROGENIC ANAEMIA
     Dosage: LAST DOSE PRIOR TO SAE 09 NOV 2011 AND 7 OCT 2011
     Route: 058
     Dates: start: 20090724
  2. ZOPICLONE [Concomitant]
     Dates: start: 20020226
  3. ENOXAPARIN [Concomitant]
     Dates: start: 20040607
  4. POLYSTYRENE SULPHATE (UNK INGREDIENTS) [Concomitant]
     Dosage: 1/2CM
     Dates: start: 20050215
  5. MORPHINE SULFATE [Concomitant]
     Dates: start: 20091104
  6. ALFACALCIDOL [Concomitant]
     Dates: start: 20040515
  7. NICORANDIL [Concomitant]
     Dates: start: 20040515
  8. CLONAZEPAM [Concomitant]
     Dosage: TDD: 10 DROPS
     Dates: start: 20041117
  9. AMIODARONE HCL [Concomitant]
     Dates: start: 20110219
  10. CALCIUM CARBONATE [Concomitant]
     Dates: start: 20040815
  11. OMEPRAZOLE [Concomitant]
     Dates: start: 20101108

REACTIONS (2)
  - LEFT VENTRICULAR FAILURE [None]
  - THROMBOCYTOPENIA [None]
